FAERS Safety Report 7862849-2 (Version None)
Quarter: 2011Q4

REPORT INFORMATION
  Report Type: 
  Country: None (occurrence: None)
  Receive Date: 20111027
  Receipt Date: 20101116
  Transmission Date: 20120403
  Serious: No
  Sender: FDA-Public Use
  Company Number: US-AMGEN-KDL437398

PATIENT
  Age: 56 Year
  Sex: Male

DRUGS (1)
  1. ENBREL [Suspect]
     Indication: RHEUMATOID ARTHRITIS
     Dosage: 50 MG, QWK
     Route: 058
     Dates: start: 20100701

REACTIONS (6)
  - INJECTION SITE HAEMORRHAGE [None]
  - SCRATCH [None]
  - IMPAIRED HEALING [None]
  - BLEEDING TIME ABNORMAL [None]
  - INJECTION SITE PAIN [None]
  - INJECTION SITE ERYTHEMA [None]
